FAERS Safety Report 6525817-9 (Version None)
Quarter: 2010Q1

REPORT INFORMATION
  Report Type: 
  Country: None (occurrence: None)
  Receive Date: 20100104
  Receipt Date: 20091224
  Transmission Date: 20100710
  Serious: Yes (Other)
  Sender: FDA-Public Use
  Company Number: B0593328A

PATIENT
  Age: 38 Year
  Sex: Male

DRUGS (4)
  1. RELENZA [Suspect]
     Indication: H1N1 INFLUENZA
     Route: 042
     Dates: start: 20090905
  2. MEROPENEM [Concomitant]
  3. VANCOMYCIN [Concomitant]
  4. SEDATIVES [Concomitant]

REACTIONS (1)
  - LIVER FUNCTION TEST ABNORMAL [None]
